FAERS Safety Report 15962316 (Version 2)
Quarter: 2019Q1

REPORT INFORMATION
  Report Type: Spontaneous
  Country: US (occurrence: US)
  Receive Date: 20190214
  Receipt Date: 20190304
  Transmission Date: 20190417
  Serious: No
  Sender: FDA-Public Use
  Company Number: US-HORIZON-VIM-0058-2019

PATIENT
  Age: 59 Year
  Sex: Male

DRUGS (6)
  1. FENOFIBRATE. [Concomitant]
     Active Substance: FENOFIBRATE
  2. SIMVASTATIN. [Concomitant]
     Active Substance: SIMVASTATIN
  3. OSTEO-FLEX [Concomitant]
  4. VIMOVO [Suspect]
     Active Substance: ESOMEPRAZOLE MAGNESIUM\NAPROXEN
     Indication: PROCEDURAL PAIN
     Dosage: 1 PILL EVERY 12 HOURS
     Route: 048
     Dates: start: 20190205
  5. ASPIRIN. [Concomitant]
     Active Substance: ASPIRIN
  6. CALCIUM-MAGNESIUM-ZINC [Concomitant]

REACTIONS (3)
  - Off label use [Unknown]
  - Palpitations [Recovering/Resolving]
  - Tachycardia [Recovering/Resolving]

NARRATIVE: CASE EVENT DATE: 20190205
